FAERS Safety Report 16083883 (Version 2)
Quarter: 2019Q3

REPORT INFORMATION
  Report Type: Spontaneous
  Country: US (occurrence: US)
  Receive Date: 20190318
  Receipt Date: 20190920
  Transmission Date: 20191004
  Serious: No
  Sender: FDA-Public Use
  Company Number: US-MYLANLABS-2019M1019356

PATIENT
  Sex: Female
  Weight: 75 kg

DRUGS (10)
  1. VENTOLIN HFA [Concomitant]
     Active Substance: ALBUTEROL SULFATE
  2. ATIVAN [Concomitant]
     Active Substance: LORAZEPAM
  3. ATARAX [Concomitant]
     Active Substance: HYDROXYZINE HYDROCHLORIDE
  4. VERSATIS [Concomitant]
     Active Substance: LIDOCAINE
  5. CLOPIDOGREL TABLETS, USP [Suspect]
     Active Substance: CLOPIDOGREL BISULFATE
     Indication: PRODUCT USED FOR UNKNOWN INDICATION
     Dosage: UNK UNK, QD  (HALF TABLET)
     Route: 048
  6. SINGULAIR [Concomitant]
     Active Substance: MONTELUKAST SODIUM
  7. ATENOLOL TABLETS, USP [Suspect]
     Active Substance: ATENOLOL
     Indication: PRODUCT USED FOR UNKNOWN INDICATION
     Dosage: 25 MILLIGRAM
     Route: 048
     Dates: start: 20190201
  8. FLOVENT [Concomitant]
     Active Substance: FLUTICASONE PROPIONATE
  9. AMLODIPINE [Concomitant]
     Active Substance: AMLODIPINE BESYLATE
  10. ATACAND [Concomitant]
     Active Substance: CANDESARTAN CILEXETIL

REACTIONS (2)
  - Wrong technique in product usage process [Recovered/Resolved]
  - Abdominal pain upper [Recovered/Resolved]
